FAERS Safety Report 7801915-4 (Version None)
Quarter: 2011Q4

REPORT INFORMATION
  Report Type: 
  Country: None (occurrence: None)
  Receive Date: 20111005
  Receipt Date: 20110927
  Transmission Date: 20120403
  Serious: Yes (Hospitalization)
  Sender: FDA-Public Use
  Company Number: TCI2011A05005

PATIENT
  Age: 74 Year
  Sex: Female

DRUGS (8)
  1. CALBLOCK (AZELNIDIPINE) [Concomitant]
  2. EVISTA [Concomitant]
  3. LANSOPRAZOLE [Suspect]
     Indication: GASTRITIS EROSIVE
     Dosage: 30 MG (30 MG, 1 IN 1 D), PER ORAL
     Route: 048
     Dates: start: 20090101, end: 20110601
  4. LANSOPRAZOLE [Suspect]
     Indication: GASTROINTESTINAL HAEMORRHAGE
     Dosage: 30 MG (30 MG, 1 IN 1 D), PER ORAL
     Route: 048
     Dates: start: 20090101, end: 20110601
  5. ALFAROL (ALFACALCIDOL) [Concomitant]
  6. PREMINENT (HYDROCHLOROTHIAZIDE, LOSARTAN) [Concomitant]
  7. URSO 250 [Concomitant]
  8. DIOVAN [Concomitant]

REACTIONS (3)
  - ALTERED STATE OF CONSCIOUSNESS [None]
  - DIARRHOEA [None]
  - COLITIS MICROSCOPIC [None]
